FAERS Safety Report 8407604-X (Version None)
Quarter: 2012Q2

REPORT INFORMATION
  Report Type: 
  Country: None (occurrence: None)
  Receive Date: 20120604
  Receipt Date: 20120522
  Transmission Date: 20120825
  Serious: No
  Sender: FDA-Public Use
  Company Number: US-ASTRAZENECA-2012SE24170

PATIENT
  Age: 78 Year
  Sex: Male
  Weight: 74.8 kg

DRUGS (4)
  1. SYMBICORT [Suspect]
     Indication: CHRONIC OBSTRUCTIVE PULMONARY DISEASE
     Dosage: 160/4.5 MCG, 2 PUFFS, BID
     Route: 055
  2. NEBULIZER ALBUTEROL [Concomitant]
  3. LEVOTHYROXINE SODIUM [Concomitant]
     Indication: THYROID DISORDER
  4. PROSTATE MEDICATION [Concomitant]
     Indication: PROSTATIC DISORDER

REACTIONS (3)
  - DEMENTIA ALZHEIMER'S TYPE [None]
  - DRUG DOSE OMISSION [None]
  - WEIGHT DECREASED [None]
